FAERS Safety Report 4358451-X (Version None)
Quarter: 2004Q2

REPORT INFORMATION
  Report Type: 
  Country: None (occurrence: None)
  Receive Date: 20040511
  Receipt Date: 20040428
  Transmission Date: 20050107
  Serious: Yes (Hospitalization)
  Sender: FDA-Public Use
  Company Number: 04P-056-0259054-00

PATIENT
  Age: 71 Year
  Sex: Male

DRUGS (4)
  1. TRICOR [Suspect]
     Dosage: 1 DOSAGE FORMS, 1 IN 1 D, PER ORAL
     Route: 048
     Dates: end: 20031224
  2. CANDESARTAN CILEXETIL [Suspect]
     Dosage: PER ORAL
     Route: 048
     Dates: start: 20031211, end: 20031224
  3. AMIODARONE HYDROCHLORIDE [Concomitant]
  4. FLUINDIONE [Concomitant]

REACTIONS (7)
  - BUNDLE BRANCH BLOCK LEFT [None]
  - ECCHYMOSIS [None]
  - HYPERSENSITIVITY [None]
  - MALAISE [None]
  - PURPURA [None]
  - VENTRICULAR FIBRILLATION [None]
  - VENTRICULAR TACHYCARDIA [None]
